FAERS Safety Report 7023212-X (Version None)
Quarter: 2010Q3

REPORT INFORMATION
  Report Type: 
  Country: None (occurrence: None)
  Receive Date: 20100930
  Receipt Date: 20100927
  Transmission Date: 20110219
  Serious: Yes (Death)
  Sender: FDA-Public Use
  Company Number: TR-CELGENEUS-161-C5013-10092560

PATIENT
  Age: 50 Year

DRUGS (1)
  1. CC-5013 [Suspect]
     Indication: MYELOFIBROSIS
     Route: 048

REACTIONS (1)
  - MYELOFIBROSIS [None]
